FAERS Safety Report 17919932 (Version 3)
Quarter: 2020Q2

REPORT INFORMATION
  Report Type: Report from Study
  Country: CA (occurrence: CA)
  Receive Date: 20200620
  Receipt Date: 20200624
  Transmission Date: 20200714
  Serious: Yes (Death, Other)
  Sender: FDA-Public Use
  Company Number: CA-ASTRAZENECA-2020SE77960

PATIENT
  Sex: Female

DRUGS (1)
  1. TAGRISSO [Suspect]
     Active Substance: OSIMERTINIB
     Indication: NON-SMALL CELL LUNG CANCER STAGE IV
     Route: 048
     Dates: start: 20200123

REACTIONS (5)
  - Pneumothorax [Fatal]
  - Pneumonia bacterial [Fatal]
  - General physical health deterioration [Unknown]
  - Pleural effusion [Fatal]
  - Respiratory failure [Fatal]
